FAERS Safety Report 25008961 (Version 1)
Quarter: 2025Q1

REPORT INFORMATION
  Report Type: Spontaneous
  Country: CA (occurrence: CA)
  Receive Date: 20250225
  Receipt Date: 20250225
  Transmission Date: 20250408
  Serious: Yes (Other)
  Sender: ASSERTIO THERAPEUTICS
  Company Number: CA-APOTEX-2023AP002663

PATIENT
  Age: 72 Year
  Sex: Male

DRUGS (21)
  1. DICLOFENAC POTASSIUM [Suspect]
     Active Substance: DICLOFENAC POTASSIUM
     Indication: Product used for unknown indication
     Dosage: UNK, BID
     Route: 065
  2. DICLOFENAC POTASSIUM [Suspect]
     Active Substance: DICLOFENAC POTASSIUM
     Dosage: UNK, QD
     Route: 065
  3. LANSOPRAZOLE [Suspect]
     Active Substance: LANSOPRAZOLE
     Indication: Product used for unknown indication
     Route: 065
  4. COSENTYX [Suspect]
     Active Substance: SECUKINUMAB
     Indication: Ankylosing spondylitis
     Dosage: 300 MG, QMO
     Route: 058
  5. COSENTYX [Suspect]
     Active Substance: SECUKINUMAB
     Dosage: 150 MG, QW
     Route: 058
  6. COSENTYX [Suspect]
     Active Substance: SECUKINUMAB
     Route: 058
  7. COSENTYX [Suspect]
     Active Substance: SECUKINUMAB
     Route: 065
  8. COSENTYX [Suspect]
     Active Substance: SECUKINUMAB
     Route: 058
  9. COSENTYX [Suspect]
     Active Substance: SECUKINUMAB
     Route: 058
  10. FENTANYL CITRATE [Suspect]
     Active Substance: FENTANYL CITRATE
     Indication: Product used for unknown indication
     Route: 065
  11. DICLOFENAC DIETHYLAMINE [Suspect]
     Active Substance: DICLOFENAC DIETHYLAMINE
     Indication: Product used for unknown indication
     Dosage: 2 DOSAGE FORM, QD
     Route: 065
  12. DICLOFENAC DIETHYLAMINE [Suspect]
     Active Substance: DICLOFENAC DIETHYLAMINE
     Dosage: UNK UNK, BID
     Route: 065
  13. ARTHROTEC [Concomitant]
     Active Substance: DICLOFENAC SODIUM\MISOPROSTOL
     Indication: Product used for unknown indication
     Route: 065
  14. DEXILANT [Concomitant]
     Active Substance: DEXLANSOPRAZOLE
     Indication: Product used for unknown indication
     Route: 065
  15. DILAUDID [Concomitant]
     Active Substance: HYDROMORPHONE HYDROCHLORIDE
     Indication: Product used for unknown indication
     Route: 065
  16. HUMIRA [Concomitant]
     Active Substance: ADALIMUMAB
     Indication: Product used for unknown indication
     Route: 065
  17. MORPHINE SULFATE [Concomitant]
     Active Substance: MORPHINE SULFATE
     Indication: Product used for unknown indication
     Route: 065
  18. NABILONE [Concomitant]
     Active Substance: NABILONE
     Indication: Product used for unknown indication
     Route: 065
  19. PHENAGLYCODOL [Concomitant]
     Active Substance: PHENAGLYCODOL
     Indication: Product used for unknown indication
     Route: 065
  20. PREDNISONE [Concomitant]
     Active Substance: PREDNISONE
     Indication: Product used for unknown indication
     Route: 065
  21. SIMPONI [Concomitant]
     Active Substance: GOLIMUMAB
     Indication: Product used for unknown indication
     Route: 065

REACTIONS (32)
  - Arthralgia [Unknown]
  - Back pain [Unknown]
  - Burning sensation [Unknown]
  - Cardiac disorder [Unknown]
  - Drug ineffective [Unknown]
  - Dry eye [Unknown]
  - Fatigue [Unknown]
  - Feeling hot [Unknown]
  - Injection site erythema [Unknown]
  - Injection site mass [Unknown]
  - Injection site reaction [Unknown]
  - Injection site warmth [Unknown]
  - Joint swelling [Unknown]
  - Muscle spasms [Unknown]
  - Musculoskeletal pain [Unknown]
  - Musculoskeletal stiffness [Unknown]
  - Neck pain [Unknown]
  - Ocular hyperaemia [Unknown]
  - Oral herpes [Unknown]
  - Pain [Unknown]
  - Pelvic pain [Unknown]
  - Abdominal pain upper [Unknown]
  - Asthenia [Unknown]
  - Diarrhoea [Unknown]
  - Dizziness [Unknown]
  - Headache [Unknown]
  - Hypersensitivity [Unknown]
  - Hypotension [Unknown]
  - Kidney infection [Unknown]
  - Malaise [Unknown]
  - Pruritus [Unknown]
  - Terminal insomnia [Unknown]
